FAERS Safety Report 26097826 (Version 2)
Quarter: 2025Q4

REPORT INFORMATION
  Report Type: Spontaneous
  Country: US (occurrence: US)
  Receive Date: 20251127
  Receipt Date: 20251219
  Transmission Date: 20260117
  Serious: Yes (Other)
  Sender: BAUSCH AND LOMB
  Company Number: US-BAUSCH-BH-2025-020662

PATIENT
  Age: 73 Year
  Sex: Female

DRUGS (3)
  1. ATIVAN [Suspect]
     Active Substance: LORAZEPAM
     Indication: Reflux gastritis
     Route: 065
     Dates: start: 2005
  2. ATIVAN [Suspect]
     Active Substance: LORAZEPAM
     Indication: Antiemetic supportive care
  3. ATIVAN [Suspect]
     Active Substance: LORAZEPAM
     Indication: Product use in unapproved indication

REACTIONS (12)
  - Gastric haemorrhage [Not Recovered/Not Resolved]
  - Hip fracture [Unknown]
  - Gastric ulcer [Not Recovered/Not Resolved]
  - Inflammation [Not Recovered/Not Resolved]
  - Pain [Not Recovered/Not Resolved]
  - Abdominal pain upper [Unknown]
  - Nausea [Not Recovered/Not Resolved]
  - Drug effective for unapproved indication [Unknown]
  - Product use in unapproved indication [Unknown]
  - Overdose [Unknown]
  - Product prescribing issue [Unknown]
  - Therapy interrupted [Unknown]
